FAERS Safety Report 8468894-0 (Version None)
Quarter: 2012Q2

REPORT INFORMATION
  Report Type: 
  Country: None (occurrence: None)
  Receive Date: 20120626
  Receipt Date: 20110715
  Transmission Date: 20120825
  Serious: Yes (Other)
  Sender: FDA-Public Use
  Company Number: DE-ROCHE-793327

PATIENT
  Age: 60 Year
  Sex: Male

DRUGS (17)
  1. FLUOROURACIL [Suspect]
     Dosage: FOURTH AND FIFTH CYCLE OF THE PALLIATIVE FIRST LINE THERAPY
     Route: 042
     Dates: start: 20080213, end: 20080521
  2. LEUCOVORIN SODIUM [Suspect]
     Dosage: PALLIATIVESYSTEMIC REINDUCTION THERAPY; LAST DOSE PRIOR TO SAE WAS ON UNSPECIFIED ON SEPTEMBER 2009.
     Route: 065
  3. LEUCOVORIN SODIUM [Suspect]
     Dosage: 24HOUR INFUSION;  FOURTH AND FIFTH CYCLE OF THE PALLIATIVE FIRST LINE THERAPY
     Route: 065
     Dates: start: 20080213, end: 20080521
  4. IRINOTECAN HCL [Suspect]
     Indication: PRODUCT USED FOR UNKNOWN INDICATION
     Dosage: THREE CYCLES OF A PALLIATIVE FIRST LINE THERAPY
     Route: 065
     Dates: start: 20070626, end: 20071028
  5. LEUCOVORIN CALCIUM [Suspect]
     Indication: PRODUCT USED FOR UNKNOWN INDICATION
     Dosage: LAST DOSE PRIOR TO SAE: ON AN UNSPECIFIED DATE IN AUGUST 2009.
     Route: 065
  6. AVASTIN [Suspect]
     Dosage: FOURTH AND FIFTH CYCLE OF THE PALLIATIVE FIRST LINE THERAPY
     Route: 042
     Dates: start: 20080213, end: 20080521
  7. OXALIPLATIN [Suspect]
     Indication: COLORECTAL CANCER
     Dosage: ONE CYCLE OF A PALLIATIVESYSTEMIC REINDUCTION THERAPY;
     Route: 042
  8. FLUOROURACIL [Suspect]
     Dosage: PALLIATIVESYSTEMIC REINDUCTION THERAPY; LAST DOSE PRIOE TO SAE: UNSPECIFIED DATE IN SEPTEMBER 2009.
     Route: 042
  9. LEUCOVORIN CALCIUM [Suspect]
     Indication: PRODUCT USED FOR UNKNOWN INDICATION
     Dosage: LAST DOSE PRIOE TO SAE: UNSPECIFIED DATE IN SEPTEMBER 2009.
     Route: 065
  10. LEUCOVORIN SODIUM [Suspect]
     Indication: PRODUCT USED FOR UNKNOWN INDICATION
     Dosage: 24H INFUSION; THREE CYCLES OF A PALLIATIVE FIRST LINE THERAPY
     Route: 065
     Dates: start: 20070626, end: 20071128
  11. AVASTIN [Suspect]
     Dosage: 12 CYCLES OF A PALLIATIVESYSTEMIC FOURTH LINE THERAPY
     Route: 042
     Dates: start: 20090201, end: 20090801
  12. FLUOROURACIL [Suspect]
     Indication: COLORECTAL CANCER
     Dosage: THREE CYCLES OF A PALLIATIVE FIRST LINE THERAPY
     Route: 042
     Dates: start: 20070626, end: 20071128
  13. IRINOTECAN HCL [Suspect]
     Dosage: FOURTH AND FIFTH CYCLE OF THE PALLIATIVE FIRST LINE THERAPY; LAST DOSE PRIOR TO SAE: 21 MAY 2008.
     Route: 065
  14. IRINOTECAN HCL [Suspect]
     Route: 065
  15. AVASTIN [Suspect]
     Indication: COLORECTAL CANCER
     Dosage: THREE CYCLES OF A PALLIATIVE FIRST LINE THERAPY
     Route: 042
     Dates: start: 20070626, end: 20071128
  16. AVASTIN [Suspect]
     Dosage: PALLIATIVESYSTEMIC REINDUCTION THERAPY; LAST DOSE PRIOR TO SAE WAS ON UNSPECIFIED ON SEPTEMBER 2009.
     Route: 042
  17. CETUXIMAB [Suspect]
     Indication: PRODUCT USED FOR UNKNOWN INDICATION
     Route: 065

REACTIONS (5)
  - RASH [None]
  - HYPERTENSION [None]
  - DRUG INTOLERANCE [None]
  - DISEASE PROGRESSION [None]
  - PULMONARY EMBOLISM [None]
